FAERS Safety Report 7532704-6 (Version None)
Quarter: 2011Q2

REPORT INFORMATION
  Report Type: 
  Country: None (occurrence: None)
  Receive Date: 20110608
  Receipt Date: 20101216
  Transmission Date: 20111010
  Serious: Yes (Other)
  Sender: FDA-Public Use
  Company Number: A0903198A

PATIENT
  Age: 77 Year
  Sex: Female

DRUGS (1)
  1. AVANDIA [Suspect]
     Indication: DIABETES MELLITUS
     Dosage: 4MG PER DAY
     Route: 048
     Dates: start: 20061102, end: 20070630

REACTIONS (2)
  - CEREBROVASCULAR ACCIDENT [None]
  - CARDIOVASCULAR DISORDER [None]
